FAERS Safety Report 4875010-0 (Version None)
Quarter: 2006Q1

REPORT INFORMATION
  Report Type: 
  Country: None (occurrence: None)
  Receive Date: 20060104
  Receipt Date: 20051221
  Transmission Date: 20060701
  Serious: Yes (Hospitalization)
  Sender: FDA-Public Use
  Company Number: 2005147624

PATIENT
  Age: 8 Year
  Sex: Male

DRUGS (2)
  1. ZITHROMAX [Suspect]
     Indication: BRONCHITIS
     Dosage: ORAL
     Route: 048
     Dates: start: 20050920, end: 20050930
  2. HOMEOPATHIC PREPARATION (HOMEOPATIC PREPARATION) [Concomitant]

REACTIONS (9)
  - ABDOMINAL PAIN UPPER [None]
  - BURN OESOPHAGEAL [None]
  - BURN OF INTERNAL ORGANS [None]
  - CAUSTIC INJURY [None]
  - DRUG DISPENSING ERROR [None]
  - DYSPHAGIA [None]
  - GASTRITIS EROSIVE [None]
  - OESOPHAGITIS [None]
  - OVERDOSE [None]
